FAERS Safety Report 14097593 (Version 7)
Quarter: 2018Q4

REPORT INFORMATION
  Report Type: Report from Study
  Country: US (occurrence: US)
  Receive Date: 20171017
  Receipt Date: 20181018
  Transmission Date: 20190204
  Serious: Yes (Hospitalization, Other)
  Sender: FDA-Public Use
  Company Number: PHEH2017US033087

PATIENT
  Age: 46 Year
  Sex: Female
  Weight: 74.6 kg

DRUGS (3)
  1. GILENYA [Suspect]
     Active Substance: FINGOLIMOD HYDROCHLORIDE
     Indication: MULTIPLE SCLEROSIS
     Dosage: 0.5 MG, QD
     Route: 048
     Dates: start: 2016
  2. SERTRALINE [Suspect]
     Active Substance: SERTRALINE HYDROCHLORIDE
     Indication: PRODUCT USED FOR UNKNOWN INDICATION
     Dosage: 25 MG, QD
     Route: 048
  3. BACTRIM [Suspect]
     Active Substance: SULFAMETHOXAZOLE\TRIMETHOPRIM
     Indication: PRODUCT USED FOR UNKNOWN INDICATION
     Route: 065

REACTIONS (10)
  - Nephrolithiasis [Recovered/Resolved]
  - Abdominal pain [Unknown]
  - Urinary tract infection [Recovered/Resolved]
  - Urosepsis [Unknown]
  - Alanine aminotransferase increased [Recovered/Resolved]
  - Urinary tract infection [Recovered/Resolved]
  - Neurogenic bladder [Unknown]
  - Blood alkaline phosphatase increased [Recovered/Resolved]
  - Chromaturia [Unknown]
  - Aspartate aminotransferase increased [Recovered/Resolved]

NARRATIVE: CASE EVENT DATE: 2016
